FAERS Safety Report 8462530-5 (Version None)
Quarter: 2012Q2

REPORT INFORMATION
  Report Type: 
  Country: None (occurrence: None)
  Receive Date: 20120625
  Receipt Date: 20120618
  Transmission Date: 20120825
  Serious: Yes (Hospitalization)
  Sender: FDA-Public Use
  Company Number: US-BAYER-2012-062074

PATIENT
  Age: 49 Year
  Sex: Female
  Weight: 91 kg

DRUGS (20)
  1. DROSPIRENONE AND ETHINYL ESTRADIOL [Suspect]
  2. CALCIUM [Concomitant]
     Dosage: 1200 MG, DAILY
     Dates: start: 20111104
  3. CITALOPRAM HYDROBROMIDE [Concomitant]
     Dosage: 20 MG, DAILY
  4. YAZ [Suspect]
  5. PHENTERMINE [Concomitant]
     Indication: WEIGHT DECREASED
     Dosage: 37.5 MG, UNK
     Dates: start: 20111001, end: 20120107
  6. CYCLOBENZAPRINE [Concomitant]
     Indication: MYALGIA
     Dosage: 10 MG, UNK
     Dates: start: 20120104
  7. FLEXERIL [Concomitant]
     Dosage: 10 MG, HS
  8. TRAZODONE HCL [Concomitant]
     Dosage: 50 MG, HS, 1-3 TABLETS
     Dates: start: 20111104
  9. TRAMADOL HCL [Concomitant]
     Dosage: 50 MG, 1-2 TIMES A DAY
     Dates: start: 20111215, end: 20120107
  10. MELOXICAM [Concomitant]
     Dosage: 7.5 MG, BID
     Dates: start: 20111215, end: 20120107
  11. BISACODYL [Concomitant]
     Dosage: 5 MG, UNK
     Dates: start: 20120107
  12. DRISDOL [Concomitant]
     Dosage: 50,000
  13. CYCLOBENZAPRINE [Concomitant]
     Indication: MUSCLE SPASMS
  14. ASPIRIN [Concomitant]
     Dosage: 325 MG, BID
     Dates: start: 20120104
  15. FERROUS SULFATE TAB [Concomitant]
     Dosage: 325 MG, UNK
     Dates: start: 20111104
  16. VITAMIN D [Concomitant]
     Dosage: 50,000 EVERY WEEK
     Dates: start: 20111104
  17. CELEXA [Concomitant]
     Dosage: 20 MG, UNK
     Dates: start: 20111104
  18. LORTAB [Concomitant]
     Dosage: 5-500 MG
     Dates: start: 20120107
  19. ORAL CONTRACEPTIVE NOS [Concomitant]
  20. GERITOL [FERRIC AMMONIUM CITRATE,METHIONINE,VITAMIN B NOS] [Concomitant]
     Dosage: AS DIRECTED
     Dates: start: 20120107

REACTIONS (2)
  - DEEP VEIN THROMBOSIS [None]
  - PULMONARY EMBOLISM [None]
